FAERS Safety Report 4525827-7 (Version None)
Quarter: 2004Q4

REPORT INFORMATION
  Report Type: 
  Country: None (occurrence: None)
  Receive Date: 20041213
  Receipt Date: 20041208
  Transmission Date: 20050328
  Serious: Yes (Disabling)
  Sender: FDA-Public Use
  Company Number: FR-MERCK-0412FRA00025

PATIENT
  Age: 70 Year
  Sex: Male

DRUGS (4)
  1. SINGULAIR [Suspect]
     Indication: ASTHMA
     Route: 048
     Dates: start: 20031110, end: 20041001
  2. SINGULAIR [Suspect]
     Indication: CHRONIC OBSTRUCTIVE AIRWAYS DISEASE
     Route: 048
     Dates: start: 20031110, end: 20041001
  3. GLICLAZIDE [Concomitant]
     Indication: DIABETES MELLITUS
     Route: 048
  4. FLUINDIONE [Concomitant]
     Route: 048

REACTIONS (1)
  - MUSCULAR WEAKNESS [None]
